FAERS Safety Report 12465702 (Version 2)
Quarter: 2016Q4

REPORT INFORMATION
  Report Type: Spontaneous
  Country: US (occurrence: US)
  Receive Date: 20160614
  Receipt Date: 20161107
  Transmission Date: 20170207
  Serious: No
  Sender: FDA-Public Use
  Company Number: US-GLAXOSMITHKLINE-US2016079508

PATIENT
  Age: 88 Year
  Sex: Female

DRUGS (3)
  1. BREO ELLIPTA [Suspect]
     Active Substance: FLUTICASONE FUROATE\VILANTEROL TRIFENATATE
     Indication: DYSPNOEA
     Dosage: 1 PUFF(S), 1D
     Route: 055
     Dates: start: 201510
  2. BREO ELLIPTA [Suspect]
     Active Substance: FLUTICASONE FUROATE\VILANTEROL TRIFENATATE
     Indication: DIAPHRAGMATIC PARALYSIS
  3. PROVENTIL [Concomitant]
     Active Substance: ALBUTEROL

REACTIONS (5)
  - Rhinorrhoea [Unknown]
  - Visual acuity reduced [Unknown]
  - Eye irritation [Unknown]
  - Off label use [Unknown]
  - Intentional product use issue [Unknown]

NARRATIVE: CASE EVENT DATE: 201510
